FAERS Safety Report 23408472 (Version 2)
Quarter: 2024Q1

REPORT INFORMATION
  Report Type: Report from Study
  Country: IL (occurrence: IL)
  Receive Date: 20240117
  Receipt Date: 20240123
  Transmission Date: 20240409
  Serious: Yes (Hospitalization, Other)
  Sender: FDA-Public Use
  Company Number: IL-002147023-NVSC2020IL118781

PATIENT
  Age: 2 Year
  Sex: Female
  Weight: 5.5 kg

DRUGS (3)
  1. ZOLGENSMA [Suspect]
     Active Substance: ONASEMNOGENE ABEPARVOVEC-XIOI
     Indication: Product used for unknown indication
     Dosage: 30.3 ML, ONCE/SINGLE (1.1X10E14VG/KG)
     Route: 042
     Dates: start: 20200423
  2. ZOLGENSMA [Suspect]
     Active Substance: ONASEMNOGENE ABEPARVOVEC-XIOI
     Dosage: 8.3 ML BN, ONCE/SINGLE
     Route: 042
  3. ZOLGENSMA [Suspect]
     Active Substance: ONASEMNOGENE ABEPARVOVEC-XIOI
     Dosage: 5.5 ML BN, ONCE/SINGLE
     Route: 042

REACTIONS (19)
  - Dyspnoea [Recovering/Resolving]
  - Cough [Recovering/Resolving]
  - Rhonchi [Recovering/Resolving]
  - Vomiting [Recovering/Resolving]
  - Atelectasis [Unknown]
  - Viral infection [Unknown]
  - Pyrexia [Recovering/Resolving]
  - Platelet count abnormal [Unknown]
  - Blood lactate dehydrogenase increased [Not Recovered/Not Resolved]
  - Troponin T increased [Recovered/Resolved]
  - Aspartate aminotransferase increased [Not Recovered/Not Resolved]
  - Pyrexia [Recovered/Resolved]
  - Troponin I increased [Recovered/Resolved]
  - Tachycardia [Recovered/Resolved]
  - Heart rate increased [Unknown]
  - Tachypnoea [Unknown]
  - Dysphagia [Recovering/Resolving]
  - Speech disorder [Unknown]
  - Motor developmental delay [Unknown]

NARRATIVE: CASE EVENT DATE: 20200426
